FAERS Safety Report 9729096 (Version 1)
Quarter: 2013Q4

REPORT INFORMATION
  Report Type: Spontaneous
  Country: JP (occurrence: JP)
  Receive Date: 20131204
  Receipt Date: 20131204
  Transmission Date: 20140711
  Serious: Yes (Other)
  Sender: FDA-Public Use
  Company Number: PHHY2013JP136483

PATIENT
  Age: 81 Year
  Sex: Female

DRUGS (4)
  1. HEPARIN [Suspect]
     Dosage: 10000 U, PER DAY
  2. ACETYLSALICYLIC ACID [Suspect]
     Dosage: 100 MG, PER DAY
  3. SIROLIMUS [Suspect]
  4. THIENOPYRIDINE [Concomitant]

REACTIONS (3)
  - Electrocardiogram ST segment elevation [Unknown]
  - Thrombosis in device [Recovered/Resolved]
  - Blood pressure decreased [Unknown]
